FAERS Safety Report 6051623-8 (Version None)
Quarter: 2009Q1

REPORT INFORMATION
  Report Type: 
  Country: None (occurrence: None)
  Receive Date: 20090126
  Receipt Date: 20090116
  Transmission Date: 20090719
  Serious: Yes (Disabling)
  Sender: FDA-Public Use
  Company Number: US-MERCK-0901USA01619

PATIENT
  Age: 13 Year
  Sex: Male

DRUGS (6)
  1. SINGULAIR [Suspect]
     Indication: ASTHMA
     Route: 048
     Dates: start: 20070101, end: 20080312
  2. SINGULAIR [Suspect]
     Route: 048
     Dates: start: 20080701
  3. PULMICORT-100 [Concomitant]
     Route: 065
  4. SYMBICORT [Concomitant]
     Route: 065
  5. PREVACID [Concomitant]
     Route: 065
  6. ALBUTEROL [Concomitant]
     Route: 065

REACTIONS (2)
  - ABNORMAL BEHAVIOUR [None]
  - CHEST PAIN [None]
